FAERS Safety Report 18352852 (Version 1)
Quarter: 2020Q4

REPORT INFORMATION
  Report Type: Spontaneous
  Country: US (occurrence: US)
  Receive Date: 20201006
  Receipt Date: 20201006
  Transmission Date: 20210114
  Serious: No
  Sender: FDA-Public Use
  Company Number: US-ALLERGAN-1951939US

PATIENT
  Age: 17 Year
  Sex: Female

DRUGS (5)
  1. VITAMINS [Concomitant]
     Active Substance: VITAMINS
  2. LINZESS [Suspect]
     Active Substance: LINACLOTIDE
     Indication: IRRITABLE BOWEL SYNDROME
     Dosage: 72 ?G, QD
     Route: 065
     Dates: start: 20191101
  3. ZYRTEC [Concomitant]
     Active Substance: CETIRIZINE HYDROCHLORIDE
     Indication: SEASONAL ALLERGY
  4. DOXEPIN [Concomitant]
     Active Substance: DOXEPIN
     Indication: ANXIETY
  5. TOPIRAMATE. [Concomitant]
     Active Substance: TOPIRAMATE
     Indication: MIGRAINE

REACTIONS (3)
  - Inappropriate schedule of product administration [Unknown]
  - Diarrhoea [Unknown]
  - Off label use [Unknown]

NARRATIVE: CASE EVENT DATE: 20191101
